FAERS Safety Report 25393853 (Version 1)
Quarter: 2025Q2

REPORT INFORMATION
  Report Type: Spontaneous
  Country: GB (occurrence: GB)
  Receive Date: 20250604
  Receipt Date: 20250604
  Transmission Date: 20250717
  Serious: Yes (Death, Other)
  Sender: CELLTRION
  Company Number: GB-CELLTRION INC.-2025GB017554

PATIENT

DRUGS (1)
  1. INFLIXIMAB [Suspect]
     Active Substance: INFLIXIMAB
     Indication: Crohn^s disease
     Dosage: REMSIMA 120MG/1ML SOLUTION FOR INJECTION PRE-FILLED PENS - INJECT ONE PRE-FILLED PEN EVERY TWO WEEKS
     Route: 058
     Dates: start: 202205, end: 202505

REACTIONS (1)
  - Death [Fatal]

NARRATIVE: CASE EVENT DATE: 20250525
